FAERS Safety Report 7987007-2 (Version None)
Quarter: 2011Q4

REPORT INFORMATION
  Report Type: 
  Country: None (occurrence: None)
  Receive Date: 20111216
  Receipt Date: 20110310
  Transmission Date: 20120403
  Serious: No
  Sender: FDA-Public Use
  Company Number: US-BRISTOL-MYERS SQUIBB COMPANY-15600240

PATIENT
  Age: 50 Year
  Sex: Female
  Weight: 53 kg

DRUGS (3)
  1. TRAZODONE HCL [Concomitant]
  2. ABILIFY [Suspect]
     Indication: POST-TRAUMATIC STRESS DISORDER
     Dosage: EVERY MORNING, INTERR ON NOV 10.RESTARTED ABILIFY ON 03MAR2011,DURATION=7 YR.
  3. BENADRYL [Concomitant]
     Indication: HYPERSENSITIVITY

REACTIONS (1)
  - PARAESTHESIA [None]
